FAERS Safety Report 11602687 (Version 1)
Quarter: 2015Q4

REPORT INFORMATION
  Report Type: Spontaneous
  Country: US (occurrence: US)
  Receive Date: 20151006
  Receipt Date: 20151006
  Transmission Date: 20160304
  Serious: No
  Sender: FDA-Public Use
  Company Number: US-AMGEN-USASP2015079187

PATIENT
  Age: 82 Year
  Sex: Male

DRUGS (1)
  1. PROLIA [Suspect]
     Active Substance: DENOSUMAB
     Indication: PRODUCT USED FOR UNKNOWN INDICATION
     Dosage: UNK, UNK
     Route: 065
     Dates: start: 2010

REACTIONS (10)
  - Depression [Unknown]
  - Musculoskeletal pain [Unknown]
  - Rash erythematous [Unknown]
  - Pyrexia [Unknown]
  - Pollakiuria [Unknown]
  - Mobility decreased [Unknown]
  - Abdominal pain [Unknown]
  - Feeling abnormal [Unknown]
  - Chills [Unknown]
  - Pruritus [Unknown]

NARRATIVE: CASE EVENT DATE: 2014
